FAERS Safety Report 8798829 (Version 1)
Quarter: 2012Q4

REPORT INFORMATION
  Report Type: 
  Country: US (occurrence: US)
  Receive Date: 20120920
  Receipt Date: 20120920
  Transmission Date: 20130627
  Serious: Yes (Hospitalization)
  Sender: FDA-Public Use
  Company Number: US-GLAXOSMITHKLINE-A0993701A

PATIENT
  Age: 86 Year
  Sex: Female

DRUGS (2)
  1. TYKERB [Suspect]
     Indication: BREAST CANCER FEMALE
     Dosage: 250MG Unknown
     Route: 048
     Dates: start: 20120229, end: 20120907
  2. CHEMOTHERAPY [Concomitant]

REACTIONS (1)
  - Cardiac failure [Unknown]
